FAERS Safety Report 18447308 (Version 1)
Quarter: 2020Q4

REPORT INFORMATION
  Report Type: Spontaneous
  Country: US (occurrence: US)
  Receive Date: 20201030
  Receipt Date: 20201030
  Transmission Date: 20210114
  Serious: Yes (Hospitalization)
  Sender: FDA-Public Use
  Company Number: None

PATIENT
  Sex: Female

DRUGS (11)
  1. VALACYCLOVIR [Concomitant]
     Active Substance: VALACYCLOVIR HYDROCHLORIDE
  2. SPRYCEL [Suspect]
     Active Substance: DASATINIB
     Indication: PRODUCT USED FOR UNKNOWN INDICATION
     Route: 048
  3. CEFPODOXIME [Concomitant]
     Active Substance: CEFPODOXIME
  4. PANTOPRAZOLE [Concomitant]
     Active Substance: PANTOPRAZOLE
  5. FUROSEMIDE. [Concomitant]
     Active Substance: FUROSEMIDE
  6. FERRAL ET [Concomitant]
  7. VORICONAZOLE. [Concomitant]
     Active Substance: VORICONAZOLE
  8. CHLORHEX GLU [Concomitant]
  9. NORML [Concomitant]
  10. SPRYCEL [Concomitant]
     Active Substance: DASATINIB
  11. POT CHLORIDE [Concomitant]
     Active Substance: POTASSIUM CHLORIDE

REACTIONS (1)
  - Hospitalisation [None]
